FAERS Safety Report 6531062-3 (Version None)
Quarter: 2010Q1

REPORT INFORMATION
  Report Type: 
  Country: None (occurrence: None)
  Receive Date: 20100108
  Receipt Date: 20091101
  Transmission Date: 20100710
  Serious: No
  Sender: FDA-Public Use
  Company Number: A0815075A

PATIENT
  Sex: Male

DRUGS (1)
  1. LOVAZA [Suspect]
     Indication: DRUG USE FOR UNKNOWN INDICATION

REACTIONS (2)
  - ERUCTATION [None]
  - INCORRECT STORAGE OF DRUG [None]
